FAERS Safety Report 13568344 (Version 1)
Quarter: 2017Q2

REPORT INFORMATION
  Report Type: Spontaneous
  Country: BR (occurrence: BR)
  Receive Date: 20170522
  Receipt Date: 20170522
  Transmission Date: 20170830
  Serious: Yes (Other)
  Sender: FDA-Public Use
  Company Number: BR-009507513-1705BRA010139

PATIENT
  Age: 1 Day
  Sex: Female
  Weight: 2.96 kg

DRUGS (2)
  1. DAMATER [Suspect]
     Active Substance: MINERALS\VITAMINS
     Dosage: UNK
     Route: 064
  2. NUVARING [Suspect]
     Active Substance: ETHINYL ESTRADIOL\ETONOGESTREL
     Dosage: UNK
     Route: 064

REACTIONS (6)
  - Umbilical cord around neck [Recovered/Resolved]
  - Maternal drugs affecting foetus [None]
  - Foetal distress syndrome [Recovered/Resolved]
  - Foetal exposure during pregnancy [Recovered/Resolved]
  - Premature baby [Recovered/Resolved]
  - Caesarean section [None]

NARRATIVE: CASE EVENT DATE: 20170318
